FAERS Safety Report 4847621-X (Version None)
Quarter: 2005Q4

REPORT INFORMATION
  Report Type: 
  Country: None (occurrence: None)
  Receive Date: 20051205
  Receipt Date: 20051124
  Transmission Date: 20060501
  Serious: Yes (Hospitalization)
  Sender: FDA-Public Use
  Company Number: 2005158960

PATIENT
  Age: 34 Year
  Sex: Female

DRUGS (5)
  1. ATARAX [Suspect]
     Indication: ILL-DEFINED DISORDER
     Dosage: 100 MG (ONCE), ORAL
     Route: 048
     Dates: start: 20051015, end: 20051015
  2. ATENOLOL [Suspect]
     Indication: ILL-DEFINED DISORDER
     Dosage: 10 TABLETS (ONCE), ORAL
     Route: 048
     Dates: start: 20051015, end: 20051015
  3. CLONAZEPAM [Concomitant]
  4. LEXOMIL (BROMAZEPAM) [Concomitant]
  5. OXAZEPAM [Concomitant]

REACTIONS (10)
  - ALCOHOL USE [None]
  - ARRHYTHMIA [None]
  - ELECTROCARDIOGRAM QT PROLONGED [None]
  - ELECTROCARDIOGRAM T WAVE INVERSION [None]
  - LOSS OF CONSCIOUSNESS [None]
  - MALAISE [None]
  - MULTIPLE DRUG OVERDOSE [None]
  - PHLEBOTOMY [None]
  - TORSADE DE POINTES [None]
  - TREMOR [None]
